FAERS Safety Report 7267383-9 (Version None)
Quarter: 2011Q1

REPORT INFORMATION
  Report Type: 
  Country: None (occurrence: None)
  Receive Date: 20110201
  Receipt Date: 20101004
  Transmission Date: 20110831
  Serious: No
  Sender: FDA-Public Use
  Company Number: A0877471A

PATIENT
  Age: 49 Year
  Sex: Female
  Weight: 59.1 kg

DRUGS (6)
  1. ARIXTRA [Suspect]
     Route: 058
     Dates: start: 20080501
  2. COUMADIN [Concomitant]
  3. DESIRUDIN [Suspect]
     Route: 065
  4. LOVENOX [Suspect]
     Indication: SKIN OPERATION
     Route: 065
  5. UNKNOWN [Suspect]
     Route: 065
  6. SYNTHROID [Concomitant]

REACTIONS (8)
  - ABDOMINAL PAIN UPPER [None]
  - ARTHRALGIA [None]
  - AURICULAR SWELLING [None]
  - EAR PAIN [None]
  - RHINALGIA [None]
  - ERYTHEMA [None]
  - PAIN IN EXTREMITY [None]
  - NASAL DISCOMFORT [None]
